FAERS Safety Report 10465935 (Version 1)
Quarter: 2014Q3

REPORT INFORMATION
  Report Type: Spontaneous
  Country: US (occurrence: US)
  Receive Date: 20140922
  Receipt Date: 20140922
  Transmission Date: 20150326
  Serious: Yes (Hospitalization)
  Sender: FDA-Public Use
  Company Number: US-AUROBINDO-AUR-APL-2014-09985

PATIENT
  Age: 59 Year
  Sex: Female
  Weight: 97.5 kg

DRUGS (11)
  1. CELEBREX [Interacting]
     Active Substance: CELECOXIB
     Indication: OSTEOARTHRITIS
  2. TEMAZEPAM. [Interacting]
     Active Substance: TEMAZEPAM
     Indication: INSOMNIA
     Dosage: 30 MG, AS NECESSARY
     Route: 065
  3. HYDROCHLOROTHIAZIDE WITH TRIAMTERENE [Interacting]
     Active Substance: HYDROCHLOROTHIAZIDE\TRIAMTERENE
     Indication: DIURETIC THERAPY
     Dosage: 37.5/25 MG, ONCE A DAY
     Route: 048
     Dates: start: 201303
  4. METOPROLOL 50MG TABLET [Suspect]
     Active Substance: METOPROLOL
     Indication: PRODUCT USED FOR UNKNOWN INDICATION
     Dosage: 50 MG, TWO TIMES A DAY
     Route: 065
  5. CELEBREX [Interacting]
     Active Substance: CELECOXIB
     Indication: SPINAL OSTEOARTHRITIS
     Dosage: 200 MG, ONCE A DAY
     Route: 048
  6. PROTONIX [Interacting]
     Active Substance: PANTOPRAZOLE SODIUM
     Indication: PRODUCT USED FOR UNKNOWN INDICATION
     Dosage: 40 MG, UNK
     Route: 065
  7. PRAVASTATIN SODIUM. [Interacting]
     Active Substance: PRAVASTATIN SODIUM
     Indication: BLOOD CHOLESTEROL INCREASED
     Dosage: 40 MG, TWO TIMES A DAY
     Route: 065
     Dates: start: 2013
  8. LEVOTHYROXINE SODIUM. [Interacting]
     Active Substance: LEVOTHYROXINE SODIUM
     Indication: THYROID DISORDER
     Dosage: 25 ?G, ONCE A DAY
     Route: 065
  9. WARFARIN [Suspect]
     Active Substance: WARFARIN
     Indication: BLOOD DISORDER
     Dosage: UNK
     Route: 065
  10. TYLENOL [Interacting]
     Active Substance: ACETAMINOPHEN
     Indication: PRODUCT USED FOR UNKNOWN INDICATION
     Dosage: UNK, AS NECESSARY
     Route: 065
  11. TRAMADOL HYDROCHLORIDE. [Interacting]
     Active Substance: TRAMADOL HYDROCHLORIDE
     Indication: PAIN
     Dosage: 50 MG, TWO TIMES A DAY
     Route: 048

REACTIONS (5)
  - Musculoskeletal stiffness [Unknown]
  - Blood potassium decreased [Unknown]
  - Osteoarthritis [Unknown]
  - Blood cholesterol increased [Unknown]
  - Drug interaction [Unknown]

NARRATIVE: CASE EVENT DATE: 201303
